FAERS Safety Report 5839418-9 (Version None)
Quarter: 2008Q3

REPORT INFORMATION
  Report Type: 
  Country: None (occurrence: None)
  Receive Date: 20080806
  Receipt Date: 20080722
  Transmission Date: 20090109
  Serious: Yes (Life-Threatening, Hospitalization)
  Sender: FDA-Public Use
  Company Number: JPI-P-003222

PATIENT
  Age: 16 Year
  Sex: Female

DRUGS (5)
  1. LUVOX IR (FLUVOXAMINE MALEATE) (TABLETS) (FLUVOXAMINE MALEATE) [Suspect]
     Indication: DEPRESSION
     Dosage: (75 MG, 1 D),ORAL; (100 MG, 1 D), ORAL; (125 MG, 1 D),ORAL
     Route: 048
     Dates: start: 20080207, end: 20080213
  2. LUVOX IR (FLUVOXAMINE MALEATE) (TABLETS) (FLUVOXAMINE MALEATE) [Suspect]
     Indication: DEPRESSION
     Dosage: (75 MG, 1 D),ORAL; (100 MG, 1 D), ORAL; (125 MG, 1 D),ORAL
     Route: 048
     Dates: start: 20080214, end: 20080220
  3. LUVOX IR (FLUVOXAMINE MALEATE) (TABLETS) (FLUVOXAMINE MALEATE) [Suspect]
     Indication: DEPRESSION
     Dosage: (75 MG, 1 D),ORAL; (100 MG, 1 D), ORAL; (125 MG, 1 D),ORAL
     Route: 048
     Dates: start: 20080221, end: 20080222
  4. PANTETHINE (PANTETHINE) [Concomitant]
  5. MAGNESIUM OXIDE (MAGNESIUM OXIDE) [Concomitant]

REACTIONS (2)
  - CARDIAC ARREST [None]
  - LIVER DISORDER [None]
